FAERS Safety Report 9387756 (Version 1)
Quarter: 2013Q3

REPORT INFORMATION
  Report Type: Spontaneous
  Country: US (occurrence: US)
  Receive Date: 20130708
  Receipt Date: 20130708
  Transmission Date: 20140515
  Serious: No
  Sender: FDA-Public Use
  Company Number: US-ASTRAZENECA-2013SE46573

PATIENT
  Age: 70 Year
  Sex: Female
  Weight: 94.3 kg

DRUGS (3)
  1. SYMBICORT [Suspect]
     Indication: ASTHMA
     Dosage: 160/4.5 MCG BID
     Route: 055
     Dates: start: 201112
  2. SYMBICORT [Suspect]
     Indication: ASTHMA
     Dosage: 160/4.5 MCG BID
     Route: 055
     Dates: start: 201205
  3. FLUTICASONE [Concomitant]
     Indication: DYSPNOEA
     Route: 065

REACTIONS (3)
  - Bronchitis [Unknown]
  - Immune system disorder [Unknown]
  - Dysphonia [Unknown]
